FAERS Safety Report 7105759-0 (Version None)
Quarter: 2010Q4

REPORT INFORMATION
  Report Type: 
  Country: None (occurrence: None)
  Receive Date: 20101110
  Receipt Date: 20101012
  Transmission Date: 20110411
  Serious: No
  Sender: FDA-Public Use
  Company Number: C-10-0235-W

PATIENT
  Sex: Male

DRUGS (2)
  1. METOPROLOL SUCCINATE EXTENDED RELEASE [Suspect]
  2. METOPROLOL SUCCINATE EXTENDED RELEASE [Suspect]

REACTIONS (3)
  - DRUG EFFECT DECREASED [None]
  - HYPOAESTHESIA [None]
  - PALPITATIONS [None]
